FAERS Safety Report 25520816 (Version 1)
Quarter: 2025Q3

REPORT INFORMATION
  Report Type: Spontaneous
  Country: US (occurrence: US)
  Receive Date: 20250705
  Receipt Date: 20250705
  Transmission Date: 20251020
  Serious: No
  Sender: TOLMAR
  Company Number: US-Tolmar-TLM-2025-03060

PATIENT
  Age: 10 Year
  Sex: Female
  Weight: 58.06 kg

DRUGS (4)
  1. FENSOLVI [Suspect]
     Active Substance: LEUPROLIDE ACETATE
     Indication: Precocious puberty
     Route: 058
  2. FENSOLVI [Suspect]
     Active Substance: LEUPROLIDE ACETATE
     Indication: Hypothalamo-pituitary disorder
  3. DEVICE [Suspect]
     Active Substance: DEVICE
     Indication: Precocious puberty
  4. DEVICE [Suspect]
     Active Substance: DEVICE
     Indication: Hypothalamo-pituitary disorder

REACTIONS (2)
  - Swelling [Unknown]
  - Off label use [Unknown]
